FAERS Safety Report 18523669 (Version 2)
Quarter: 2020Q4

REPORT INFORMATION
  Report Type: Report from Study
  Country: None (occurrence: CA)
  Receive Date: 20201119
  Receipt Date: 20201208
  Transmission Date: 20210114
  Serious: Yes (Death, Hospitalization, Other)
  Sender: FDA-Public Use
  Company Number: CA-ABBVIE-20K-028-3656198-00

PATIENT
  Age: 91 Year
  Sex: Male

DRUGS (1)
  1. LUPRON DEPOT [Suspect]
     Active Substance: LEUPROLIDE ACETATE
     Indication: PROSTATE CANCER
     Route: 030

REACTIONS (3)
  - Palliative care [Unknown]
  - Prostate cancer metastatic [Fatal]
  - Hormone-refractory prostate cancer [Unknown]

NARRATIVE: CASE EVENT DATE: 20201017
